FAERS Safety Report 4775895-2 (Version None)
Quarter: 2005Q3

REPORT INFORMATION
  Report Type: 
  Country: None (occurrence: None)
  Receive Date: 20050914
  Receipt Date: 20050322
  Transmission Date: 20060218
  Serious: Yes (Hospitalization)
  Sender: FDA-Public Use
  Company Number: 163-20785-05030581

PATIENT
  Age: 63 Year
  Sex: Female

DRUGS (2)
  1. THALOMID [Suspect]
     Indication: METASTASIS
     Dosage: 400 MG, QHS, ORAL
     Route: 048
     Dates: start: 20010816, end: 20050101
  2. THALOMID [Suspect]

REACTIONS (4)
  - DISEASE PROGRESSION [None]
  - DYSPNOEA [None]
  - METASTASES TO LUNG [None]
  - PLEURAL EFFUSION [None]
